FAERS Safety Report 6222461-8 (Version None)
Quarter: 2009Q2

REPORT INFORMATION
  Report Type: 
  Country: None (occurrence: None)
  Receive Date: 20090608
  Receipt Date: 20090526
  Transmission Date: 20091009
  Serious: Yes (Death, Other)
  Sender: FDA-Public Use
  Company Number: BE-GENENTECH-279933

PATIENT
  Sex: Male

DRUGS (6)
  1. BLINDED OMALIZUMAB [Suspect]
     Indication: NASAL POLYPS
     Dosage: 300 MG, 1/MONTH
     Route: 058
     Dates: end: 20071221
  2. BLINDED PLACEBO [Suspect]
     Indication: NASAL POLYPS
     Dosage: 300 MG, 1/MONTH
     Route: 058
     Dates: end: 20071221
  3. BLINDED OMALIZUMAB [Suspect]
     Indication: ASTHMA
  4. BLINDED PLACEBO [Suspect]
     Indication: ASTHMA
  5. FLUTICASONE PROPIONATE/SALMETEROL XINAFOATE [Concomitant]
     Indication: DRUG USE FOR UNKNOWN INDICATION
     Dosage: UNK
     Dates: start: 20060301
  6. FLUNISOLIDE [Concomitant]
     Indication: DRUG USE FOR UNKNOWN INDICATION
     Dosage: UNK
     Dates: start: 20060301, end: 20070904

REACTIONS (1)
  - LYMPHOMA [None]
